FAERS Safety Report 16998619 (Version 1)
Quarter: 2019Q4

REPORT INFORMATION
  Report Type: Report from Study
  Country: US (occurrence: US)
  Receive Date: 20191105
  Receipt Date: 20191105
  Transmission Date: 20200122
  Serious: Yes (Other)
  Sender: FDA-Public Use
  Company Number: NVSC2019US023687

PATIENT
  Sex: Male

DRUGS (1)
  1. ENTRESTO [Suspect]
     Active Substance: SACUBITRIL\VALSARTAN
     Indication: CARDIAC FAILURE CONGESTIVE
     Dosage: UNK
     Route: 048

REACTIONS (8)
  - Nausea [Unknown]
  - Decreased appetite [Unknown]
  - Gait disturbance [Unknown]
  - Anxiety [Unknown]
  - Haemorrhage [Unknown]
  - Malaise [Unknown]
  - Prostatic disorder [Unknown]
  - Dyspnoea [Unknown]
